FAERS Safety Report 6520740-8 (Version None)
Quarter: 2009Q4

REPORT INFORMATION
  Report Type: 
  Country: None (occurrence: None)
  Receive Date: 20091229
  Receipt Date: 20091222
  Transmission Date: 20100525
  Serious: Yes (Death)
  Sender: FDA-Public Use
  Company Number: GXBR2009US02184

PATIENT
  Age: 15 Year
  Sex: Male

DRUGS (4)
  1. ALPRAZOLAM [Suspect]
  2. METHADON HCL TAB [Suspect]
  3. ACETAMINOPHEN AND HYDROCODONE BITARTRATE [Suspect]
  4. OXYCODONE HCL [Suspect]

REACTIONS (1)
  - DRUG TOXICITY [None]
